FAERS Safety Report 16398885 (Version 2)
Quarter: 2019Q2

REPORT INFORMATION
  Report Type: Spontaneous
  Country: US (occurrence: US)
  Receive Date: 20190606
  Receipt Date: 20190627
  Transmission Date: 20190711
  Serious: Yes (Other)
  Sender: FDA-Public Use
  Company Number: US-BAYER-2019-110024

PATIENT
  Age: 17 Year
  Sex: Female
  Weight: 50.79 kg

DRUGS (1)
  1. SKYLA [Suspect]
     Active Substance: LEVONORGESTREL
     Indication: CONTRACEPTION
     Dosage: 14 MCG/24HR, CONT
     Route: 015
     Dates: start: 20170807, end: 20180815

REACTIONS (8)
  - Uterine haemorrhage [Recovered/Resolved]
  - Anaemia [None]
  - Genital haemorrhage [None]
  - Abdominal pain [None]
  - Gastritis [None]
  - Genital haemorrhage [None]
  - Vaginal haemorrhage [None]
  - Menstruation irregular [None]

NARRATIVE: CASE EVENT DATE: 20180201
